FAERS Safety Report 21232308 (Version 1)
Quarter: 2022Q3

REPORT INFORMATION
  Report Type: Spontaneous
  Country: US (occurrence: None)
  Receive Date: 20220819
  Receipt Date: 20220819
  Transmission Date: 20221027
  Serious: No
  Sender: FDA-Public Use
  Company Number: None

PATIENT
  Age: 53 Year
  Sex: Male

DRUGS (1)
  1. MOLNUPIRAVIR [Suspect]
     Active Substance: MOLNUPIRAVIR
     Indication: COVID-19
     Dates: start: 20220813, end: 20220818

REACTIONS (5)
  - Urticaria [None]
  - Erythema [None]
  - Back pain [None]
  - Pain [None]
  - Sciatica [None]

NARRATIVE: CASE EVENT DATE: 20220818
